FAERS Safety Report 4729963-1 (Version None)
Quarter: 2005Q3

REPORT INFORMATION
  Report Type: 
  Country: None (occurrence: None)
  Receive Date: 20050728
  Receipt Date: 20050719
  Transmission Date: 20060218
  Serious: Yes (Other)
  Sender: FDA-Public Use
  Company Number: 2005-06-1217

PATIENT
  Age: 68 Year
  Sex: Female

DRUGS (4)
  1. PEG-INTRON [Suspect]
     Indication: NEOPLASM
     Dosage: 50 MCG QWK SUBCUTANEOUS
     Route: 058
     Dates: start: 20041201, end: 20050630
  2. EUTHYROX TABLETS [Concomitant]
  3. RAMIPRIL [Concomitant]
  4. METOPROLOL SUCCINATE [Concomitant]

REACTIONS (5)
  - ARRHYTHMIA [None]
  - ATRIOVENTRICULAR BLOCK [None]
  - BUNDLE BRANCH BLOCK LEFT [None]
  - CARDIAC DISORDER [None]
  - DYSPNOEA [None]
